FAERS Safety Report 9787729 (Version 2)
Quarter: 2014Q3

REPORT INFORMATION
  Report Type: Spontaneous
  Country: JP (occurrence: None)
  Receive Date: 20131226
  Receipt Date: 20140703
  Transmission Date: 20150326
  Serious: Yes (Other)
  Sender: FDA-Public Use
  Company Number: THR-2013-057

PATIENT
  Age: 76 Year
  Sex: Female

DRUGS (7)
  1. BONOTED(MIODRONIC ACID) [Concomitant]
  2. LIPITOR(ATORVASTIN CALCIUM) [Concomitant]
  3. EDIROL(ELDECALCITOL) [Concomitant]
  4. OCRIPLASMIN VS SHAM INJECTION(OCTOPLASMIN) INJECTION [Suspect]
     Active Substance: OCRIPLASMIN
     Indication: VITREOUS ADHESIONS
     Dosage: ONE TIME DOSE
     Route: 031
     Dates: start: 20131022, end: 20131022
  5. EYECARE(HYALURONATE SODIUM) [Concomitant]
  6. NORVASC(AMLODIPINE BESLATE) [Concomitant]
  7. MYSLEE(ZOLPIDEM TARTRATE) [Concomitant]

REACTIONS (8)
  - Foreign body sensation in eyes [None]
  - Mydriasis [None]
  - Keratitis [None]
  - Iritis [None]
  - Eye pain [None]
  - Visual acuity reduced [None]
  - Angle closure glaucoma [None]
  - Miosis [None]

NARRATIVE: CASE EVENT DATE: 20131211
